FAERS Safety Report 10964752 (Version 2)
Quarter: 2016Q2

REPORT INFORMATION
  Report Type: Spontaneous
  Country: FR (occurrence: FR)
  Receive Date: 20150330
  Receipt Date: 20160602
  Transmission Date: 20160815
  Serious: Yes (Hospitalization)
  Sender: FDA-Public Use
  Company Number: FR-ROCHE-1556125

PATIENT
  Age: 76 Year
  Sex: Female

DRUGS (10)
  1. ZELBORAF [Suspect]
     Active Substance: VEMURAFENIB
     Route: 048
     Dates: start: 201501, end: 20150120
  2. INEXIUM [Concomitant]
     Active Substance: ESOMEPRAZOLE
     Route: 065
  3. LGX818 (RAF KINASE INHIBITOR) [Concomitant]
     Route: 065
     Dates: start: 2012, end: 201408
  4. LASILIX [Concomitant]
     Active Substance: FUROSEMIDE
     Route: 065
  5. ZELBORAF [Suspect]
     Active Substance: VEMURAFENIB
     Route: 048
     Dates: start: 2010, end: 2012
  6. KARDEGIC [Concomitant]
     Active Substance: ASPIRIN LYSINE
     Route: 065
  7. CARDENSIEL [Concomitant]
     Active Substance: BISOPROLOL FUMARATE
     Route: 065
  8. ZELBORAF [Suspect]
     Active Substance: VEMURAFENIB
     Indication: MALIGNANT MELANOMA
     Route: 048
     Dates: start: 20140923, end: 20141014
  9. ALDACTONE [Concomitant]
     Active Substance: SPIRONOLACTONE
     Route: 065
  10. TRIATEC (FRANCE) [Concomitant]
     Active Substance: RAMIPRIL
     Route: 065

REACTIONS (2)
  - Acute pulmonary oedema [Recovered/Resolved]
  - Stress cardiomyopathy [Recovered/Resolved]

NARRATIVE: CASE EVENT DATE: 20141014
